FAERS Safety Report 14211789 (Version 1)
Quarter: 2017Q4

REPORT INFORMATION
  Report Type: Spontaneous
  Country: US (occurrence: None)
  Receive Date: 20171121
  Receipt Date: 20171121
  Transmission Date: 20180321
  Serious: No
  Sender: FDA-Public Use
  Company Number: None

PATIENT
  Age: 32 Year
  Sex: Female
  Weight: 72.58 kg

DRUGS (1)
  1. PARAGARD T 380A [Suspect]
     Active Substance: COPPER
     Dates: start: 20171108

REACTIONS (9)
  - Dizziness [None]
  - Headache [None]
  - Myalgia [None]
  - Depression [None]
  - Arthralgia [None]
  - Depressed level of consciousness [None]
  - Fatigue [None]
  - Asthenia [None]
  - Disturbance in attention [None]

NARRATIVE: CASE EVENT DATE: 20171108
